FAERS Safety Report 8613593-5 (Version None)
Quarter: 2012Q3

REPORT INFORMATION
  Report Type: 
  Country: None (occurrence: None)
  Receive Date: 20120823
  Receipt Date: 20120808
  Transmission Date: 20120928
  Serious: Yes (Hospitalization)
  Sender: FDA-Public Use
  Company Number: JP-009507513-1207JPN012651

PATIENT

DRUGS (22)
  1. MERISLON [Concomitant]
     Route: 048
  2. GLUFAST [Concomitant]
     Dosage: 15 MG, QD
     Route: 048
     Dates: start: 20120517
  3. CALBLOCK [Concomitant]
     Dosage: 8 MG, QD
     Route: 048
  4. SOLACET F [Concomitant]
     Indication: PROPHYLAXIS
     Dosage: 500 ML, QD
     Route: 042
     Dates: start: 20120712, end: 20120716
  5. REBETOL [Suspect]
     Route: 048
     Dates: start: 20120516, end: 20120711
  6. REBETOL [Suspect]
     Route: 048
     Dates: start: 20120712, end: 20120717
  7. TELAVIC [Suspect]
     Indication: HEPATITIS C
     Dosage: 1500 MG, ONCE
     Route: 048
     Dates: start: 20120516
  8. GLUFAST [Concomitant]
     Dosage: 30 MG, QD
     Route: 048
     Dates: end: 20120517
  9. PEG-INTRON [Suspect]
     Dosage: 1.0MCG/KG/WEEK
     Route: 058
     Dates: start: 20120614
  10. REBETOL [Suspect]
     Indication: HEPATITIS C
     Dosage: 800 MG, ONCE
     Route: 048
     Dates: start: 20110516, end: 20110711
  11. REBETOL [Suspect]
     Dosage: 200 MG, QD
     Route: 048
     Dates: start: 20120719
  12. MERISLON [Concomitant]
     Dosage: 24 MG, QD
     Route: 048
  13. LOXONIN [Concomitant]
     Dosage: 60MG/DAY,AS NEEDED
     Route: 048
     Dates: start: 20120516
  14. TALION (BEPOTASTINE BESYLATE) [Concomitant]
     Route: 048
     Dates: start: 20120518
  15. VITAMEDIN [Concomitant]
     Indication: PROPHYLAXIS
     Route: 042
     Dates: start: 20120712, end: 20120716
  16. REBETOL [Suspect]
     Dosage: 600 MG, QD
     Route: 048
     Dates: start: 20120712
  17. CALBLOCK [Concomitant]
     Route: 048
  18. LANSOPRAZOLE [Concomitant]
     Indication: PROPHYLAXIS AGAINST GASTROINTESTINAL ULCER
     Dosage: 15 MG, QD
     Route: 048
     Dates: start: 20120516
  19. [THERAPY UNSPECIFIED] [Concomitant]
     Dosage: AS NEEDED
     Route: 062
     Dates: start: 20120518
  20. PEG-INTRON [Suspect]
     Indication: HEPATITIS C
     Dosage: 1.2MCG/KG/WEEK
     Route: 058
     Dates: start: 20120516, end: 20120530
  21. PEG-INTRON [Suspect]
     Dosage: 0.5MCG/KG/WEEK
     Route: 058
     Dates: start: 20120607, end: 20120607
  22. METHADERM CREME [Concomitant]
     Dosage: AS NEEDED
     Route: 062
     Dates: start: 20120518

REACTIONS (1)
  - DECREASED APPETITE [None]
